FAERS Safety Report 8974112 (Version 1)
Quarter: 2012Q4

REPORT INFORMATION
  Report Type: Spontaneous
  Country: CA (occurrence: None)
  Receive Date: 20121212
  Receipt Date: 20121212
  Transmission Date: 20130627
  Serious: Yes (Hospitalization)
  Sender: FDA-Public Use
  Company Number: 142782

PATIENT
  Age: 48 Year
  Sex: Male

DRUGS (1)
  1. DOXYCYCLINE [Suspect]
     Indication: Q FEVER

REACTIONS (4)
  - Venoocclusive liver disease [None]
  - Portal hypertension [None]
  - Varices oesophageal [None]
  - Portal hypertensive gastropathy [None]
